FAERS Safety Report 15364078 (Version 1)
Quarter: 2018Q3

REPORT INFORMATION
  Report Type: Report from Study
  Country: US (occurrence: US)
  Receive Date: 20180908
  Receipt Date: 20180908
  Transmission Date: 20181010
  Serious: Yes (Other)
  Sender: FDA-Public Use
  Company Number: US-AMGEN-USASL2018122091

PATIENT
  Age: 56 Year
  Sex: Male
  Weight: 117.91 kg

DRUGS (2)
  1. ENBREL [Suspect]
     Active Substance: ETANERCEPT
     Indication: PSORIASIS
     Dosage: UNK
     Route: 065
     Dates: start: 201710
  2. ENBREL [Suspect]
     Active Substance: ETANERCEPT
     Indication: RHEUMATOID ARTHRITIS
     Dosage: UNK
     Route: 065

REACTIONS (9)
  - Thermal burn [Unknown]
  - Skin disorder [Unknown]
  - Impaired healing [Unknown]
  - Rib fracture [Unknown]
  - Road traffic accident [Unknown]
  - Clavicle fracture [Unknown]
  - Infection [Unknown]
  - Laceration [Unknown]
  - Psoriasis [Unknown]

NARRATIVE: CASE EVENT DATE: 201712
